FAERS Safety Report 10063622 (Version 5)
Quarter: 2014Q2

REPORT INFORMATION
  Report Type: Spontaneous
  Country: FR (occurrence: FR)
  Receive Date: 20140407
  Receipt Date: 20140515
  Transmission Date: 20141212
  Serious: Yes (Death, Congenital Anomaly, Other)
  Sender: FDA-Public Use
  Company Number: FR-ABBVIE-14P-056-1220707-00

PATIENT
  Sex: Male

DRUGS (2)
  1. KALETRA [Suspect]
     Indication: MATERNAL EXPOSURE TIMING UNSPECIFIED
     Route: 064
  2. COMBIVIR [Suspect]
     Indication: MATERNAL EXPOSURE TIMING UNSPECIFIED
     Route: 064

REACTIONS (15)
  - Abortion spontaneous [Fatal]
  - Low set ears [Unknown]
  - Dysmorphism [Unknown]
  - Congenital anomaly [Unknown]
  - Spine malformation [Unknown]
  - Unevaluable event [Unknown]
  - Dysmorphism [Unknown]
  - Growth retardation [Unknown]
  - Extraskeletal ossification [Unknown]
  - Congenital foot malformation [Unknown]
  - Congenital musculoskeletal anomaly [Unknown]
  - Congenital musculoskeletal anomaly [Unknown]
  - Umbilical cord vascular disorder [Unknown]
  - Dysmorphism [Unknown]
  - Foetal exposure during pregnancy [Unknown]
